FAERS Safety Report 8037991-6 (Version None)
Quarter: 2012Q1

REPORT INFORMATION
  Report Type: 
  Country: None (occurrence: None)
  Receive Date: 20120111
  Receipt Date: 20120106
  Transmission Date: 20120608
  Serious: Yes (Other)
  Sender: FDA-Public Use
  Company Number: US-JNJFOC-20120102325

PATIENT
  Age: 51 Year
  Sex: Male

DRUGS (4)
  1. MOTRIN [Concomitant]
     Dosage: AS NEEDED
  2. SORIATANE [Concomitant]
  3. VITAMIN C [Concomitant]
  4. STELARA [Suspect]
     Indication: PSORIASIS
     Route: 058

REACTIONS (1)
  - MYOCARDIAL INFARCTION [None]
